FAERS Safety Report 4810443-X (Version None)
Quarter: 2005Q4

REPORT INFORMATION
  Report Type: 
  Country: None (occurrence: None)
  Receive Date: 20051024
  Receipt Date: 20051014
  Transmission Date: 20060501
  Serious: Yes (Hospitalization, Other)
  Sender: FDA-Public Use
  Company Number: KII-2005-0019027

PATIENT
  Age: 68 Year
  Sex: Male

DRUGS (1)
  1. OXYCONTIN [Suspect]
     Dosage: ORAL
     Route: 048

REACTIONS (5)
  - ACCIDENTAL OVERDOSE [None]
  - BLOOD UREA INCREASED [None]
  - DEPRESSED LEVEL OF CONSCIOUSNESS [None]
  - MEDICATION ERROR [None]
  - VOMITING [None]
